FAERS Safety Report 4394470-5 (Version None)
Quarter: 2004Q3

REPORT INFORMATION
  Report Type: 
  Country: None (occurrence: None)
  Receive Date: 20040712
  Receipt Date: 20040630
  Transmission Date: 20050211
  Serious: Yes (Death, Hospitalization)
  Sender: FDA-Public Use
  Company Number: US-AMGEN-US082093

PATIENT
  Age: 77 Year
  Sex: Male

DRUGS (4)
  1. EPOGEN [Suspect]
     Indication: ANAEMIA
     Dates: start: 20040602, end: 20040623
  2. LISINOPRIL [Concomitant]
  3. PLAVIX [Concomitant]
  4. ECOTRIN [Concomitant]

REACTIONS (3)
  - DYSPNOEA [None]
  - GROIN PAIN [None]
  - PULMONARY EMBOLISM [None]
